FAERS Safety Report 8029161-2 (Version None)
Quarter: 2012Q1

REPORT INFORMATION
  Report Type: 
  Country: None (occurrence: None)
  Receive Date: 20120106
  Receipt Date: 20120104
  Transmission Date: 20120608
  Serious: Yes (Other)
  Sender: FDA-Public Use
  Company Number: PHEH2012US000652

PATIENT
  Sex: Female
  Weight: 68.027 kg

DRUGS (2)
  1. STEROIDS [Concomitant]
  2. TASIGNA [Suspect]
     Indication: ACUTE MYELOID LEUKAEMIA
     Dosage: 400 MG, DAILY
     Route: 048
     Dates: start: 20100207

REACTIONS (1)
  - HAEMATOCHEZIA [None]
